FAERS Safety Report 23531302 (Version 1)
Quarter: 2024Q1

REPORT INFORMATION
  Report Type: Spontaneous
  Country: US (occurrence: US)
  Receive Date: 20240216
  Receipt Date: 20240216
  Transmission Date: 20240410
  Serious: No
  Sender: FDA-Public Use
  Company Number: US-Pharmaand-2023001251

PATIENT
  Sex: Female
  Weight: 68.118 kg

DRUGS (1)
  1. RUCAPARIB [Suspect]
     Active Substance: RUCAPARIB
     Indication: Ovarian cancer
     Dosage: 400 MG, DAILY
     Route: 048
     Dates: start: 20220718

REACTIONS (1)
  - Carbohydrate antigen 125 increased [Unknown]
